FAERS Safety Report 16303486 (Version 1)
Quarter: 2019Q2

REPORT INFORMATION
  Report Type: Report from Study
  Country: ES (occurrence: ES)
  Receive Date: 20190513
  Receipt Date: 20190513
  Transmission Date: 20190711
  Serious: Yes (Hospitalization)
  Sender: FDA-Public Use
  Company Number: ES-SA-2019SA098827

PATIENT
  Age: 68 Year
  Sex: Male

DRUGS (3)
  1. VELMETIA [Concomitant]
     Active Substance: METFORMIN\SITAGLIPTIN
     Indication: TYPE 2 DIABETES MELLITUS
     Dosage: UNK
     Route: 048
  2. INSULIN GLARGINE [Suspect]
     Active Substance: INSULIN GLARGINE
     Indication: TYPE 2 DIABETES MELLITUS
     Dosage: UNK, UNK
     Route: 058
  3. XIGDUO XR [Concomitant]
     Active Substance: DAPAGLIFLOZIN PROPANEDIOL\METFORMIN HYDROCHLORIDE
     Indication: TYPE 2 DIABETES MELLITUS
     Dosage: UNK UNK, UNK
     Route: 048

REACTIONS (4)
  - Myocardial infarction [Recovered/Resolved]
  - Hypoglycaemia [Recovered/Resolved]
  - Hyperglycaemia [Recovered/Resolved]
  - Food craving [Recovered/Resolved]

NARRATIVE: CASE EVENT DATE: 20190504
